FAERS Safety Report 5278874-4 (Version None)
Quarter: 2007Q1

REPORT INFORMATION
  Report Type: 
  Country: None (occurrence: None)
  Receive Date: 20070328
  Receipt Date: 20070326
  Transmission Date: 20070707
  Serious: Yes (Hospitalization)
  Sender: FDA-Public Use
  Company Number: NL-BRISTOL-MYERS SQUIBB COMPANY-13727516

PATIENT
  Age: 62 Year
  Sex: Female

DRUGS (1)
  1. SELEKTINE [Suspect]
     Indication: HYPERCHOLESTEROLAEMIA
     Dates: start: 19880101, end: 20061001

REACTIONS (3)
  - MICTURITION DISORDER [None]
  - MUSCLE SPASMS [None]
  - VISUAL ACUITY REDUCED [None]
